FAERS Safety Report 16221469 (Version 2)
Quarter: 2019Q2

REPORT INFORMATION
  Report Type: Report from Study
  Country: KR (occurrence: KR)
  Receive Date: 20190422
  Receipt Date: 20190627
  Transmission Date: 20190711
  Serious: Yes (Hospitalization, Other)
  Sender: FDA-Public Use
  Company Number: KR-SA-2019SA103877

PATIENT
  Age: 58 Year
  Sex: Male

DRUGS (2)
  1. INSULIN GLARGINE/LIXISENATIDE [Suspect]
     Active Substance: INSULIN GLARGINE\LIXISENATIDE
     Indication: DIABETES MELLITUS
     Dosage: 24 U, QD
     Route: 058
     Dates: start: 20190320, end: 201904
  2. INSULIN GLARGINE/LIXISENATIDE [Suspect]
     Active Substance: INSULIN GLARGINE\LIXISENATIDE
     Dosage: 14 U, QD
     Route: 058
     Dates: start: 2019

REACTIONS (1)
  - Diabetic foot [Recovering/Resolving]
